FAERS Safety Report 10910945 (Version 1)
Quarter: 2015Q1

REPORT INFORMATION
  Report Type: Spontaneous
  Country: DE (occurrence: DE)
  Receive Date: 20150312
  Receipt Date: 20150312
  Transmission Date: 20150721
  Serious: Yes (Hospitalization)
  Sender: FDA-Public Use
  Company Number: PHHY2015DE027538

PATIENT
  Age: 31 Year
  Sex: Male

DRUGS (1)
  1. DIAZEPAM. [Suspect]
     Active Substance: DIAZEPAM
     Indication: PRODUCT USED FOR UNKNOWN INDICATION
     Dosage: 40 MG, UNK
     Route: 065

REACTIONS (6)
  - Peripheral ischaemia [Recovered/Resolved]
  - Deep vein thrombosis [Recovered/Resolved]
  - Accidental exposure to product [Unknown]
  - Skin discolouration [Recovered/Resolved]
  - Drug withdrawal syndrome [Unknown]
  - Pain in extremity [Recovered/Resolved]
